FAERS Safety Report 7017868-5 (Version None)
Quarter: 2010Q3

REPORT INFORMATION
  Report Type: 
  Country: None (occurrence: None)
  Receive Date: 20100928
  Receipt Date: 20100917
  Transmission Date: 20110219
  Serious: Yes (Hospitalization)
  Sender: FDA-Public Use
  Company Number: FR-JNJFOC-20100903624

PATIENT
  Age: 52 Year
  Sex: Female
  Weight: 45 kg

DRUGS (3)
  1. REMICADE [Suspect]
     Indication: CROHN'S DISEASE
     Route: 042
  2. REMICADE [Suspect]
     Dosage: 2 DOSES
     Route: 042
  3. ASPIRIN [Concomitant]
     Indication: CORONARY ARTERY DISEASE

REACTIONS (6)
  - ARTHRALGIA [None]
  - ARTHRITIS [None]
  - LIP OEDEMA [None]
  - MYALGIA [None]
  - PAIN IN JAW [None]
  - URTICARIA [None]
